FAERS Safety Report 17075194 (Version 1)
Quarter: 2019Q4

REPORT INFORMATION
  Report Type: Spontaneous
  Country: AU (occurrence: AU)
  Receive Date: 20191126
  Receipt Date: 20191126
  Transmission Date: 20200122
  Serious: Yes (Hospitalization, Other)
  Sender: FDA-Public Use
  Company Number: AU-PFIZER INC-PHA2002126352AU

PATIENT
  Age: 61 Year
  Sex: Male

DRUGS (3)
  1. SIMVASTATIN. [Interacting]
     Active Substance: SIMVASTATIN
     Dosage: UNK
  2. KETOCONAZOLE. [Interacting]
     Active Substance: KETOCONAZOLE
     Dosage: UNK
  3. CELEBREX [Suspect]
     Active Substance: CELECOXIB
     Dosage: UNK

REACTIONS (4)
  - Rhabdomyolysis [Recovered/Resolved]
  - Drug interaction [Unknown]
  - Myopathy toxic [Recovered/Resolved]
  - Myoglobinuria [Recovered/Resolved]
